FAERS Safety Report 23226600 (Version 1)
Quarter: 2023Q4

REPORT INFORMATION
  Report Type: Other
  Country: JP (occurrence: None)
  Receive Date: 20231124
  Receipt Date: 20231124
  Transmission Date: 20240110
  Serious: Yes (Other)
  Sender: FDA-Public Use
  Company Number: JP-ROCHE-3458239

PATIENT

DRUGS (3)
  1. BEVACIZUMAB [Suspect]
     Active Substance: BEVACIZUMAB
     Indication: Colorectal cancer metastatic
     Route: 041
  2. TRIFLURIDINE [Suspect]
     Active Substance: TRIFLURIDINE
     Indication: Colorectal cancer metastatic
     Route: 048
  3. TIPIRACIL HYDROCHLORIDE [Suspect]
     Active Substance: TIPIRACIL HYDROCHLORIDE
     Indication: Colorectal cancer metastatic
     Route: 048

REACTIONS (14)
  - Febrile neutropenia [Unknown]
  - Neutropenia [Unknown]
  - Anaemia [Unknown]
  - Thrombocytopenia [Unknown]
  - Hypertension [Unknown]
  - Fatigue [Unknown]
  - Decreased appetite [Unknown]
  - Nausea [Unknown]
  - Diarrhoea [Unknown]
  - Proteinuria [Unknown]
  - Intestinal perforation [Unknown]
  - Haemorrhage [Unknown]
  - Embolism [Unknown]
  - Stomatitis [Unknown]
